FAERS Safety Report 17144425 (Version 2)
Quarter: 2020Q1

REPORT INFORMATION
  Report Type: Report from Study
  Country: US (occurrence: US)
  Receive Date: 20191212
  Receipt Date: 20200113
  Transmission Date: 20200409
  Serious: No
  Sender: FDA-Public Use
  Company Number: US-IPSEN BIOPHARMACEUTICALS, INC.-2019-24214

PATIENT
  Sex: Female

DRUGS (1)
  1. INCRELEX [Suspect]
     Active Substance: MECASERMIN
     Indication: BODY HEIGHT BELOW NORMAL
     Dosage: DOSE NOT REPORTED
     Route: 065
     Dates: start: 201807

REACTIONS (3)
  - Blood glucose abnormal [Unknown]
  - Treatment noncompliance [Unknown]
  - Off label use [Unknown]
